FAERS Safety Report 5964358-4 (Version None)
Quarter: 2008Q4

REPORT INFORMATION
  Report Type: 
  Country: None (occurrence: None)
  Receive Date: 20081124
  Receipt Date: 20081117
  Transmission Date: 20090506
  Serious: Yes (Hospitalization, Other)
  Sender: FDA-Public Use
  Company Number: US-PFIZER INC-2008048822

PATIENT
  Sex: Female
  Weight: 68 kg

DRUGS (12)
  1. DETROL [Suspect]
     Indication: HYPERTONIC BLADDER
     Dates: end: 20081001
  2. DETROL LA [Suspect]
     Indication: HYPERTONIC BLADDER
  3. CATAPRES [Concomitant]
  4. NORVASC [Concomitant]
  5. TOPROL-XL [Concomitant]
  6. ZOLOFT [Concomitant]
  7. ACETYLSALICYLIC ACID SRT [Concomitant]
  8. PLAVIX [Concomitant]
  9. POTASSIUM CHLORIDE [Concomitant]
  10. PRILOSEC [Concomitant]
  11. ULTRAM [Concomitant]
  12. ZOCOR [Concomitant]

REACTIONS (6)
  - DIZZINESS [None]
  - DRUG INEFFECTIVE [None]
  - FALL [None]
  - MOBILITY DECREASED [None]
  - POLLAKIURIA [None]
  - URINARY INCONTINENCE [None]
